FAERS Safety Report 6094749-5 (Version None)
Quarter: 2009Q1

REPORT INFORMATION
  Report Type: 
  Country: None (occurrence: None)
  Receive Date: 20090225
  Receipt Date: 20090218
  Transmission Date: 20090719
  Serious: Yes (Hospitalization)
  Sender: FDA-Public Use
  Company Number: 2008AL005565

PATIENT
  Age: 67 Year
  Sex: Female
  Weight: 62.5964 kg

DRUGS (20)
  1. DIGOXIN [Suspect]
     Indication: ATRIAL FIBRILLATION
     Dosage: 0.125 MG DAILY PO
     Route: 048
  2. SYNTHROID [Concomitant]
  3. ATENOLOL [Concomitant]
  4. COUMADIN [Concomitant]
  5. VYTORIN [Concomitant]
  6. CALCIUM [Concomitant]
  7. ASPIRIN [Concomitant]
  8. FOSAMAX [Concomitant]
  9. EZETIMIBE [Concomitant]
  10. LEVOTHYROXINE SODIUM [Concomitant]
  11. PROTONIX [Concomitant]
  12. ZOCOR [Concomitant]
  13. PRAVASTATIN [Concomitant]
  14. ALENDRONATE SODIUM [Concomitant]
  15. LEVOXYL [Concomitant]
  16. ZOSTAVAX [Concomitant]
  17. CIPROFLOXACIN HCL [Concomitant]
  18. NAPROXEN [Concomitant]
  19. CARAC [Concomitant]
  20. AZITHROMYCIN [Concomitant]

REACTIONS (9)
  - ABDOMINAL DISTENSION [None]
  - COLON ADENOMA [None]
  - COLONIC POLYP [None]
  - DIVERTICULUM [None]
  - FATIGUE [None]
  - FEELING ABNORMAL [None]
  - HEART RATE IRREGULAR [None]
  - PARAESTHESIA [None]
  - VISION BLURRED [None]
